FAERS Safety Report 9838405 (Version 1)
Quarter: 2014Q1

REPORT INFORMATION
  Report Type: Spontaneous
  Country: US (occurrence: US)
  Receive Date: 20140123
  Receipt Date: 20140123
  Transmission Date: 20141002
  Serious: Yes (Other)
  Sender: FDA-Public Use
  Company Number: US-BAYER-2014-011553

PATIENT
  Age: 2 Year
  Sex: Female
  Weight: 14 kg

DRUGS (1)
  1. BAYER GENUINE ASPIRIN ORIGINAL STRENGTH [Suspect]
     Indication: PYREXIA
     Dosage: 1 DF, ONCE
     Route: 048
     Dates: start: 1978, end: 1978

REACTIONS (4)
  - Rash [None]
  - Dysphagia [None]
  - Dyspnoea [None]
  - Wrong drug administered [None]
